FAERS Safety Report 12983042 (Version 1)
Quarter: 2016Q4

REPORT INFORMATION
  Report Type: Spontaneous
  Country: US (occurrence: US)
  Receive Date: 20161129
  Receipt Date: 20161129
  Transmission Date: 20170207
  Serious: No
  Sender: FDA-Public Use
  Company Number: US-MALLINCKRODT-T201601830

PATIENT
  Age: 64 Year
  Sex: Female
  Weight: 71 kg

DRUGS (2)
  1. FENTANYL MYLAN [Concomitant]
     Active Substance: FENTANYL
     Indication: CANCER PAIN
     Dosage: 25 MCG/HR, UNKNOWN FREQUENCY
     Route: 065
     Dates: start: 201604, end: 201605
  2. FENTANYL TRANSDERMAL SYSTEM [Suspect]
     Active Substance: FENTANYL
     Indication: CANCER PAIN
     Dosage: 50 MCG/HR EVERY 72 HOURS
     Route: 062
     Dates: start: 20160506

REACTIONS (2)
  - Wrong technique in product usage process [Recovered/Resolved]
  - Product adhesion issue [Recovered/Resolved]

NARRATIVE: CASE EVENT DATE: 2016
